FAERS Safety Report 12778376 (Version 2)
Quarter: 2016Q4

REPORT INFORMATION
  Report Type: Spontaneous
  Country: US (occurrence: US)
  Receive Date: 20160926
  Receipt Date: 20161015
  Transmission Date: 20170207
  Serious: Yes (Other)
  Sender: FDA-Public Use
  Company Number: US-JNJFOC-20160920509

PATIENT
  Age: 88 Year
  Sex: Male
  Weight: 77.11 kg

DRUGS (2)
  1. IMODIUM MULTI-SYMPTOM RELIEF [Suspect]
     Active Substance: DIMETHICONE\LOPERAMIDE HYDROCHLORIDE
     Route: 048
  2. IMODIUM MULTI-SYMPTOM RELIEF [Suspect]
     Active Substance: DIMETHICONE\LOPERAMIDE HYDROCHLORIDE
     Indication: ANTIDIARRHOEAL SUPPORTIVE CARE
     Dosage: ALMOST DAILY; FOR ABOUT 10 DAYS
     Route: 048

REACTIONS (5)
  - Choking [Unknown]
  - Dysphagia [Unknown]
  - Product solubility abnormal [Unknown]
  - Dysgeusia [Unknown]
  - Cough [Unknown]
